FAERS Safety Report 7668099-7 (Version None)
Quarter: 2011Q3

REPORT INFORMATION
  Report Type: 
  Country: None (occurrence: None)
  Receive Date: 20110808
  Receipt Date: 20110714
  Transmission Date: 20111222
  Serious: Yes (Other)
  Sender: FDA-Public Use
  Company Number: GR-JNJFOC-20110300930

PATIENT
  Age: 30 Year
  Sex: Female
  Weight: 80 kg

DRUGS (6)
  1. TOPIRAMATE [Suspect]
     Dosage: FOR 3 DAYS
     Route: 048
     Dates: start: 20110219, end: 20110222
  2. VENLAFAXINE [Concomitant]
     Route: 048
     Dates: end: 20110303
  3. TOPIRAMATE [Suspect]
     Indication: SCHIZOAFFECTIVE DISORDER
     Route: 048
     Dates: start: 20110223, end: 20110301
  4. TOPIRAMATE [Suspect]
     Indication: DRUG THERAPY
     Dosage: FOR 3 DAYS
     Route: 048
     Dates: start: 20110219, end: 20110222
  5. TOPIRAMATE [Suspect]
     Route: 048
     Dates: start: 20110223, end: 20110301
  6. SEROQUEL [Concomitant]
     Route: 048
     Dates: end: 20110303

REACTIONS (3)
  - OFF LABEL USE [None]
  - MYOPIA [None]
  - INTRAOCULAR PRESSURE INCREASED [None]
